FAERS Safety Report 4539317-9 (Version None)
Quarter: 2004Q4

REPORT INFORMATION
  Report Type: 
  Country: None (occurrence: None)
  Receive Date: 20041227
  Receipt Date: 20041227
  Transmission Date: 20050328
  Serious: Yes (Other)
  Sender: FDA-Public Use
  Company Number: None

PATIENT
  Age: 66 Year
  Sex: Female
  Weight: 78.0187 kg

DRUGS (2)
  1. CELEBREX [Suspect]
     Indication: BONE DISORDER
  2. CELEBREX [Suspect]
     Indication: SPINAL COLUMN STENOSIS

REACTIONS (3)
  - ANURIA [None]
  - CYSTITIS [None]
  - FLUID RETENTION [None]
